FAERS Safety Report 11599295 (Version 1)
Quarter: 2015Q4

REPORT INFORMATION
  Report Type: Spontaneous
  Country: US (occurrence: US)
  Receive Date: 20151006
  Receipt Date: 20151006
  Transmission Date: 20160304
  Serious: Yes (Other)
  Sender: FDA-Public Use
  Company Number: US-PFIZER INC-2015329668

PATIENT
  Age: 46 Year
  Sex: Male
  Weight: 82 kg

DRUGS (2)
  1. VIAGRA [Suspect]
     Active Substance: SILDENAFIL CITRATE
     Dosage: 100 MG, 2X/WEEK
     Route: 048
     Dates: start: 2013
  2. PRILOSEC [Concomitant]
     Active Substance: OMEPRAZOLE MAGNESIUM
     Indication: GASTROOESOPHAGEAL REFLUX DISEASE
     Dosage: 20 MG, 1X/DAY (TAKE 1 CAPSULE NIGHTLY)

REACTIONS (9)
  - Swelling face [Recovered/Resolved]
  - Nasal congestion [Unknown]
  - Sleep disorder [Unknown]
  - Respiratory tract oedema [Recovered/Resolved]
  - Lip swelling [Recovered/Resolved]
  - Oedema peripheral [Recovered/Resolved]
  - Rash generalised [Recovered/Resolved]
  - Product quality issue [Unknown]
  - Headache [Unknown]

NARRATIVE: CASE EVENT DATE: 20150929
